APPROVED DRUG PRODUCT: PHENOXYBENZAMINE HYDROCHLORIDE
Active Ingredient: PHENOXYBENZAMINE HYDROCHLORIDE
Strength: 10MG
Dosage Form/Route: CAPSULE;ORAL
Application: A215042 | Product #001 | TE Code: AB
Applicant: NOVITIUM PHARMA LLC
Approved: Jul 19, 2022 | RLD: No | RS: No | Type: RX